FAERS Safety Report 9593829 (Version 1)
Quarter: 2013Q3

REPORT INFORMATION
  Report Type: Spontaneous
  Country: US (occurrence: None)
  Receive Date: 20130930
  Receipt Date: 20130930
  Transmission Date: 20140515
  Serious: No
  Sender: FDA-Public Use
  Company Number: 1000047954

PATIENT
  Age: 85 Year
  Sex: Male

DRUGS (9)
  1. LINZESS [Suspect]
     Indication: CONSTIPATION
     Dosage: 290 MCG (290 MCG, 1 IN 1 D), ORAL
     Route: 048
     Dates: start: 20130813, end: 20130813
  2. CARVEDILOL (CARVEDILOL) (CARVEDILOL) [Concomitant]
  3. FUROSEMIDE [Concomitant]
  4. BENICAR (ATORVASTATIN) (ATORVASTATIN) [Concomitant]
  5. ATORVASTATIN (ATORVASTATIN) (ATORVASTATIN) [Concomitant]
  6. ZOLPIDEM (ZOLPIDEM) (ZOLPIDEM) [Concomitant]
  7. ALLOPURINOL (ALLOPURINOL) (ALLOPURINOL) [Concomitant]
  8. HUMULIN (HUMAN MIXTARD) (HUMAN MIXTARD) [Concomitant]
  9. LANTUS (INSULIN GLARGINE) (INSULIN GLARGINE) [Concomitant]

REACTIONS (2)
  - Diarrhoea [None]
  - Abdominal pain upper [None]
